FAERS Safety Report 6728192-X (Version None)
Quarter: 2010Q2

REPORT INFORMATION
  Report Type: 
  Country: None (occurrence: None)
  Receive Date: 20100517
  Receipt Date: 20100507
  Transmission Date: 20101027
  Serious: Yes (Other)
  Sender: FDA-Public Use
  Company Number: B0652128A

PATIENT
  Age: 43 Year
  Sex: Female

DRUGS (1)
  1. ZYBAN [Suspect]
     Dosage: 150MG SEE DOSAGE TEXT
     Route: 048
     Dates: start: 20100401, end: 20100501

REACTIONS (7)
  - ASTHMA [None]
  - ERYTHEMA [None]
  - EYE SWELLING [None]
  - HYPERSENSITIVITY [None]
  - OEDEMA MOUTH [None]
  - PRURITUS [None]
  - SWOLLEN TONGUE [None]
